FAERS Safety Report 20689778 (Version 1)
Quarter: 2022Q2

REPORT INFORMATION
  Report Type: Spontaneous
  Country: US (occurrence: US)
  Receive Date: 20220408
  Receipt Date: 20220408
  Transmission Date: 20220721
  Serious: Yes (Other)
  Sender: FDA-Public Use
  Company Number: US-NOVOPROD-905508

PATIENT
  Age: 88 Year
  Sex: Female

DRUGS (1)
  1. LEVEMIR [Suspect]
     Active Substance: INSULIN DETEMIR
     Indication: Product used for unknown indication
     Dosage: 58 UNITS
     Route: 058
     Dates: start: 2018

REACTIONS (4)
  - Blood glucose decreased [Recovered/Resolved]
  - Sinusitis [Recovering/Resolving]
  - Hearing aid user [Not Recovered/Not Resolved]
  - Excessive cerumen production [Not Recovered/Not Resolved]

NARRATIVE: CASE EVENT DATE: 20190101
